FAERS Safety Report 16624510 (Version 1)
Quarter: 2019Q3

REPORT INFORMATION
  Report Type: Spontaneous
  Country: US (occurrence: US)
  Receive Date: 20190611
  Receipt Date: 20190611
  Transmission Date: 20191004
  Serious: No
  Sender: FDA-Public Use
  Company Number: None

PATIENT
  Age: 47 Year
  Sex: Male

DRUGS (1)
  1. TEMOZOLOMIDE 5MG CAP [Suspect]
     Active Substance: TEMOZOLOMIDE
     Dates: start: 201904

REACTIONS (2)
  - Palpitations [None]
  - Pyrexia [None]

NARRATIVE: CASE EVENT DATE: 20190602
